FAERS Safety Report 5127371-5 (Version None)
Quarter: 2006Q4

REPORT INFORMATION
  Report Type: 
  Country: None (occurrence: None)
  Receive Date: 20061010
  Receipt Date: 20060925
  Transmission Date: 20070319
  Serious: Yes (Hospitalization)
  Sender: FDA-Public Use
  Company Number: 2006-02-0232

PATIENT
  Sex: Female

DRUGS (6)
  1. PEG-INTRON [Suspect]
     Indication: HEPATITIS C
     Dosage: 30 MCG; QW; SC
     Route: 058
     Dates: start: 20050620
  2. REBETOL [Suspect]
     Indication: HEPATITIS C
     Dosage: 200 MG; QD; PO
     Route: 048
     Dates: start: 20050620
  3. FAMOTIDINE [Concomitant]
  4. ANTICONVULSANT [Concomitant]
  5. .. [Concomitant]
  6. .. [Concomitant]

REACTIONS (1)
  - BLOOD CREATINE PHOSPHOKINASE INCREASED [None]
